FAERS Safety Report 5716540-9 (Version None)
Quarter: 2008Q2

REPORT INFORMATION
  Report Type: 
  Country: None (occurrence: None)
  Receive Date: 20080424
  Receipt Date: 20080416
  Transmission Date: 20081010
  Serious: Yes (Death, Hospitalization, Other)
  Sender: FDA-Public Use
  Company Number: US-ELI_LILLY_AND_COMPANY-US200802002837

PATIENT
  Sex: Male
  Weight: 99.773 kg

DRUGS (10)
  1. BYETTA [Suspect]
     Dosage: UNK, UNKNOWN
     Route: 058
     Dates: start: 20060101, end: 20060101
  2. AVANDAMET [Concomitant]
     Dosage: UNK, 2/D
     Route: 048
  3. FELODIPINE [Concomitant]
     Dosage: 2.5 MG, DAILY (1/D)
     Route: 065
  4. ALTACE [Concomitant]
     Dosage: 10 MG, DAILY (1/D)
     Route: 048
  5. TRICOR [Concomitant]
     Dosage: 145 MG, DAILY (1/D)
     Route: 048
  6. LASIX [Concomitant]
     Dosage: 20 MG, DAILY (1/D)
     Route: 048
     Dates: end: 20070401
  7. ASPIRIN [Concomitant]
     Dosage: 325 MG, DAILY (1/D)
     Route: 048
  8. CALCIUM CARBONATE [Concomitant]
     Dosage: UNK, 2/D
     Route: 065
  9. VICODIN [Concomitant]
     Indication: PAIN
     Dosage: UNK, AS NEEDED
     Route: 048
  10. MULTI-VITAMIN [Concomitant]
     Dosage: UNK, UNKNOWN
     Route: 065

REACTIONS (19)
  - ABDOMINAL PAIN UPPER [None]
  - ASCITES [None]
  - BLOOD GLUCOSE INCREASED [None]
  - CHOLELITHIASIS [None]
  - DEEP VEIN THROMBOSIS [None]
  - ENTEROCOCCAL INFECTION [None]
  - GENERALISED OEDEMA [None]
  - INTERNATIONAL NORMALISED RATIO INCREASED [None]
  - KLEBSIELLA INFECTION [None]
  - MALNUTRITION [None]
  - PANCREATITIS ACUTE [None]
  - PANCREATITIS NECROTISING [None]
  - PERITONITIS BACTERIAL [None]
  - PULMONARY EMBOLISM [None]
  - RENAL CYST [None]
  - RESPIRATORY FAILURE [None]
  - URINE OUTPUT DECREASED [None]
  - WEIGHT DECREASED [None]
  - WEIGHT INCREASED [None]
